FAERS Safety Report 7606712-0 (Version None)
Quarter: 2011Q3

REPORT INFORMATION
  Report Type: 
  Country: None (occurrence: None)
  Receive Date: 20110713
  Receipt Date: 20110706
  Transmission Date: 20111222
  Serious: Yes (Life-Threatening)
  Sender: FDA-Public Use
  Company Number: JP-MERCK-1107USA01150

PATIENT
  Age: 79 Year
  Sex: Male

DRUGS (8)
  1. MUCOSTA [Concomitant]
     Indication: GASTRITIS
     Dosage: DOSAGE IS UNCERTAIN DURING A DAY
     Route: 048
  2. CEREKINON [Concomitant]
     Indication: IRRITABLE BOWEL SYNDROME
     Dosage: DOSAGE IS UNCERTAIN DURING A DAY
     Route: 048
  3. JANUVIA [Suspect]
     Indication: DIABETES MELLITUS
     Route: 048
     Dates: end: 20101125
  4. DEPROMEL [Concomitant]
     Indication: DEPRESSION
     Dosage: DOSAGE IS UNCERTAIN DURING A DAY
     Route: 048
  5. INDAPAMIDE [Suspect]
     Indication: HYPERTENSION
     Dosage: DOSAGE IS UNCERTAIN DURING A DAY
     Route: 048
  6. SENNOSIDES [Concomitant]
     Indication: CONSTIPATION
     Dosage: DOSAGE IS UNCERTAIN DURING A DAY
     Route: 048
  7. COLONEL [Concomitant]
     Indication: IRRITABLE BOWEL SYNDROME
     Dosage: DOSAGE IS UNCERTAIN DURING A DAY
     Route: 048
  8. ZOLPIDEM [Concomitant]
     Indication: INSOMNIA
     Dosage: DOSAGE IS UNCERTAIN DURING A DAY
     Route: 048

REACTIONS (3)
  - ASCITES [None]
  - OEDEMA [None]
  - NEPHROTIC SYNDROME [None]
